FAERS Safety Report 5690257-1 (Version None)
Quarter: 2008Q2

REPORT INFORMATION
  Report Type: 
  Country: None (occurrence: None)
  Receive Date: 20080401
  Receipt Date: 20080324
  Transmission Date: 20081010
  Serious: Yes (Other)
  Sender: FDA-Public Use
  Company Number: US-ASTRAZENECA-2008UW05916

PATIENT
  Age: 7 Year
  Sex: Female
  Weight: 18.2 kg

DRUGS (2)
  1. TOPROL-XL [Suspect]
     Route: 048
  2. ZOLOFT [Concomitant]

REACTIONS (1)
  - MEDICATION ERROR [None]
